FAERS Safety Report 25852666 (Version 1)
Quarter: 2025Q3

REPORT INFORMATION
  Report Type: Spontaneous
  Country: GB (occurrence: GB)
  Receive Date: 20250926
  Receipt Date: 20250926
  Transmission Date: 20251020
  Serious: Yes (Life-Threatening, Other)
  Sender: RANBAXY
  Company Number: GB-SUN PHARMACEUTICAL INDUSTRIES LTD-2025R1-529084

PATIENT
  Sex: Female
  Weight: 0.68 kg

DRUGS (2)
  1. HYDROCORTISONE [Suspect]
     Active Substance: HYDROCORTISONE
     Indication: Prophylaxis
     Dosage: 0.5 MILLIGRAM/KILOGRAM, BID
     Route: 065
  2. HYDROCORTISONE [Suspect]
     Active Substance: HYDROCORTISONE
     Dosage: 0.5 MILLIGRAM/KILOGRAM, DAILY
     Route: 065

REACTIONS (3)
  - Hypertrophic cardiomyopathy [Unknown]
  - Apnoea [Unknown]
  - Bradycardia [Unknown]
